FAERS Safety Report 5306633-2 (Version None)
Quarter: 2007Q2

REPORT INFORMATION
  Report Type: 
  Country: None (occurrence: None)
  Receive Date: 20070424
  Receipt Date: 20070412
  Transmission Date: 20071010
  Serious: Yes (Death, Life-Threatening, Other)
  Sender: FDA-Public Use
  Company Number: JP-PFIZER INC-2007025818

PATIENT
  Sex: Female

DRUGS (9)
  1. ZYVOX [Suspect]
     Indication: STAPHYLOCOCCAL INFECTION
     Route: 042
     Dates: start: 20070214, end: 20070227
  2. ANTIBIOTICS [Concomitant]
  3. FINIBAX [Concomitant]
     Route: 042
     Dates: start: 20070210, end: 20070214
  4. LEPETAN [Concomitant]
     Route: 042
     Dates: start: 20070210
  5. MIDAZOLAM HCL [Concomitant]
     Route: 042
     Dates: start: 20070210
  6. ALL OTHER THERAPEUTIC PRODUCTS [Concomitant]
     Route: 042
     Dates: start: 20070211
  7. VITAMIN CAP [Concomitant]
     Route: 042
     Dates: start: 20070211
  8. LASIX [Concomitant]
     Route: 042
     Dates: start: 20070216
  9. OMEPRAL [Concomitant]
     Route: 042
     Dates: start: 20070211, end: 20070305

REACTIONS (3)
  - CARDIAC FAILURE [None]
  - PLATELET COUNT DECREASED [None]
  - VENTRICULAR FIBRILLATION [None]
